FAERS Safety Report 6965803-8 (Version None)
Quarter: 2010Q3

REPORT INFORMATION
  Report Type: 
  Country: None (occurrence: None)
  Receive Date: 20100903
  Receipt Date: 20100827
  Transmission Date: 20110219
  Serious: Yes (Other)
  Sender: FDA-Public Use
  Company Number: HQWYE125704FEB05

PATIENT
  Sex: Female
  Weight: 81.72 kg

DRUGS (3)
  1. PREMPRO [Suspect]
     Indication: MENOPAUSAL SYMPTOMS
     Dosage: UNSPECIFIED
     Route: 048
     Dates: start: 19970101, end: 20010101
  2. PREMPRO [Suspect]
     Indication: PROPHYLAXIS
  3. PREMPRO [Suspect]
     Indication: OSTEOPOROSIS

REACTIONS (1)
  - BREAST CANCER METASTATIC [None]
